FAERS Safety Report 5521596-2 (Version None)
Quarter: 2007Q4

REPORT INFORMATION
  Report Type: 
  Country: None (occurrence: None)
  Receive Date: 20071115
  Receipt Date: 20071031
  Transmission Date: 20080405
  Serious: Yes (Hospitalization)
  Sender: FDA-Public Use
  Company Number: 230211K07BRA

PATIENT
  Age: 29 Year
  Sex: Female

DRUGS (5)
  1. REBIF [Suspect]
     Dosage: 22 MCG, 3 IN 1 WEEKS;   44 MCG, 3 IN 1 WEEKS
     Dates: start: 20070226, end: 20071003
  2. REBIF [Suspect]
     Dosage: 22 MCG, 3 IN 1 WEEKS;   44 MCG, 3 IN 1 WEEKS
     Dates: start: 20071003, end: 20071030
  3. AMANTADINE HYDROCHLORIDE [Concomitant]
  4. FLUOXETINE HYDROCHLORIDE [Concomitant]
  5. COTYLENOL [Concomitant]

REACTIONS (3)
  - DRUG HYPERSENSITIVITY [None]
  - INFLUENZA LIKE ILLNESS [None]
  - VOMITING [None]
